FAERS Safety Report 8796950 (Version 2)
Quarter: 2012Q4

REPORT INFORMATION
  Report Type: 
  Country: VE (occurrence: VE)
  Receive Date: 20120920
  Receipt Date: 20121002
  Transmission Date: 20130627
  Serious: Yes (Other)
  Sender: FDA-Public Use
  Company Number: PHHY2012VE081161

PATIENT
  Sex: Female

DRUGS (2)
  1. ACLASTA [Suspect]
     Indication: OSTEOPOROSIS
     Dosage: UNK UKN, yearly
     Route: 042
     Dates: start: 2011
  2. ACLASTA [Suspect]
     Route: 042
     Dates: start: 20120527

REACTIONS (4)
  - Bronchitis [Recovering/Resolving]
  - Cough [Not Recovered/Not Resolved]
  - Increased upper airway secretion [Not Recovered/Not Resolved]
  - Pain [Recovering/Resolving]
